FAERS Safety Report 4602112-6 (Version None)
Quarter: 2005Q2

REPORT INFORMATION
  Report Type: 
  Country: None (occurrence: None)
  Receive Date: 20050215
  Receipt Date: 20040603
  Transmission Date: 20051028
  Serious: Yes (Other)
  Sender: FDA-Public Use
  Company Number: MC200400067

PATIENT
  Sex: Female

DRUGS (1)
  1. ANGIOMAX [Suspect]
     Indication: ANTICOAGULANT THERAPY
     Dosage: BOLUS, IV BOLUS
     Route: 040

REACTIONS (3)
  - COAGULATION TIME ABNORMAL [None]
  - MYOCARDIAL INFARCTION [None]
  - STENT OCCLUSION [None]
